FAERS Safety Report 8924754 (Version 1)
Quarter: 2012Q4

REPORT INFORMATION
  Report Type: 
  Country: HR (occurrence: HR)
  Receive Date: 20121126
  Receipt Date: 20121126
  Transmission Date: 20130627
  Serious: Yes (Other)
  Sender: FDA-Public Use
  Company Number: HR-PFIZER INC-2012293575

PATIENT
  Age: 60 Year
  Sex: Male

DRUGS (6)
  1. ZOLOFT [Suspect]
     Indication: DEPRESSION
     Dosage: 50 mg, 1x/day
     Dates: start: 201203, end: 201211
  2. GLIVEC [Concomitant]
     Dosage: UNK
  3. TAMOSIN [Concomitant]
     Dosage: UNK
  4. APAURIN [Concomitant]
     Dosage: UNK
  5. MISAR [Concomitant]
     Dosage: UNK
  6. FLUZEPAM [Concomitant]
     Dosage: UNK

REACTIONS (1)
  - Sialoadenitis [Not Recovered/Not Resolved]
